FAERS Safety Report 19739519 (Version 3)
Quarter: 2021Q4

REPORT INFORMATION
  Report Type: Report from Study
  Country: US (occurrence: US)
  Receive Date: 20210824
  Receipt Date: 20211204
  Transmission Date: 20220303
  Serious: No
  Sender: FDA-Public Use
  Company Number: US-IPSEN BIOPHARMACEUTICALS, INC.-2021-20219

PATIENT
  Age: 73 Year
  Sex: Male

DRUGS (2)
  1. SOMATULINE DEPOT [Suspect]
     Active Substance: LANREOTIDE ACETATE
     Indication: Carcinoid tumour
     Dosage: 120 MG
     Route: 058
     Dates: start: 202103
  2. SOMATULINE DEPOT [Suspect]
     Active Substance: LANREOTIDE ACETATE
     Indication: Gastroenteropancreatic neuroendocrine tumour disease

REACTIONS (3)
  - Steatorrhoea [Recovering/Resolving]
  - Flatulence [Recovering/Resolving]
  - Drug effect less than expected [Unknown]

NARRATIVE: CASE EVENT DATE: 20210101
